FAERS Safety Report 15358872 (Version 2)
Quarter: 2018Q4

REPORT INFORMATION
  Report Type: Spontaneous
  Country: US (occurrence: US)
  Receive Date: 20180906
  Receipt Date: 20181205
  Transmission Date: 20190204
  Serious: No
  Sender: FDA-Public Use
  Company Number: US-PTC THERAPEUTICS, INC.-US-2018PTC000519

PATIENT

DRUGS (4)
  1. EMFLAZA [Suspect]
     Active Substance: DEFLAZACORT
     Dosage: 15 MG, QD
     Route: 048
     Dates: start: 20171020
  2. VITAMINS NOS [Concomitant]
     Active Substance: VITAMINS
     Indication: PRODUCT USED FOR UNKNOWN INDICATION
  3. EMFLAZA [Suspect]
     Active Substance: DEFLAZACORT
     Indication: DUCHENNE MUSCULAR DYSTROPHY
     Dosage: 9 MG, QD
     Route: 048
     Dates: start: 20180622
  4. EMFLAZA [Suspect]
     Active Substance: DEFLAZACORT
     Dosage: 1.5 MG, PER WEEK

REACTIONS (3)
  - Skin striae [Not Recovered/Not Resolved]
  - Swelling [Unknown]
  - Growth retardation [Not Recovered/Not Resolved]

NARRATIVE: CASE EVENT DATE: 2018
